FAERS Safety Report 9006360 (Version 1)
Quarter: 2013Q1

REPORT INFORMATION
  Report Type: Spontaneous
  Country: US (occurrence: US)
  Receive Date: 20130110
  Receipt Date: 20130110
  Transmission Date: 20140127
  Serious: No
  Sender: FDA-Public Use
  Company Number: US-BIOGENIDEC-2013BI001128

PATIENT
  Age: 31 Year
  Sex: Male

DRUGS (2)
  1. AVONEX [Suspect]
     Indication: MULTIPLE SCLEROSIS
     Route: 030
     Dates: start: 20120905
  2. TYLENOL [Concomitant]
     Indication: PREMEDICATION

REACTIONS (2)
  - Injection site coldness [Recovered/Resolved]
  - Feeling abnormal [Not Recovered/Not Resolved]
